FAERS Safety Report 8065922-1 (Version None)
Quarter: 2011Q4

REPORT INFORMATION
  Report Type: 
  Country: None (occurrence: None)
  Receive Date: 20111221
  Receipt Date: 20111004
  Transmission Date: 20120403
  Serious: Yes (Hospitalization)
  Sender: FDA-Public Use
  Company Number: PHEH2011US05959

PATIENT
  Age: 65 Year
  Sex: Male
  Weight: 93.9 kg

DRUGS (1)
  1. EXJADE [Suspect]
     Indication: MYELODYSPLASTIC SYNDROME
     Dosage: 1500 MG, DAILY, ORAL
     Route: 048
     Dates: start: 20090209

REACTIONS (1)
  - FULL BLOOD COUNT DECREASED [None]
